FAERS Safety Report 22276014 (Version 1)
Quarter: 2023Q2

REPORT INFORMATION
  Report Type: Spontaneous
  Country: US (occurrence: None)
  Receive Date: 20230501
  Receipt Date: 20230501
  Transmission Date: 20230722
  Serious: Yes (Disabling)
  Sender: FDA-Public Use
  Company Number: None

PATIENT
  Age: 73 Year
  Sex: Female
  Weight: 72 kg

DRUGS (4)
  1. VIGAMOX [Suspect]
     Active Substance: MOXIFLOXACIN HYDROCHLORIDE
     Indication: Cataract operation
     Dosage: FREQUENCY : EVERY 12 HOURS;?
     Route: 047
  2. VITAMIN D3 [Concomitant]
     Active Substance: CHOLECALCIFEROL
  3. BIOTIN [Concomitant]
     Active Substance: BIOTIN
  4. FOLATE SODIUM [Concomitant]
     Active Substance: FOLATE SODIUM

REACTIONS (12)
  - Arthralgia [None]
  - Arthralgia [None]
  - Arthralgia [None]
  - Arthralgia [None]
  - Onychomadesis [None]
  - Alopecia [None]
  - Neuropathy peripheral [None]
  - Tendon rupture [None]
  - Rotator cuff syndrome [None]
  - Collagen disorder [None]
  - Muscle atrophy [None]
  - Tendon laxity [None]

NARRATIVE: CASE EVENT DATE: 20050420
